FAERS Safety Report 24837432 (Version 1)
Quarter: 2025Q1

REPORT INFORMATION
  Report Type: Spontaneous
  Country: US (occurrence: None)
  Receive Date: 20250113
  Receipt Date: 20250113
  Transmission Date: 20250409
  Serious: Yes (Hospitalization)
  Sender: FDA-CTU
  Company Number: None

PATIENT
  Sex: Female

DRUGS (11)
  1. ADAKVEO [Suspect]
     Active Substance: CRIZANLIZUMAB-TMCA
     Indication: Sickle cell disease
     Dosage: FREQUENCY : MONTHLY;?
     Dates: start: 20241105
  2. ADAKVEO INJ 100/10ML [Concomitant]
  3. AMITRIPTYLIN TAB 50MG [Concomitant]
  4. BUPIVACAINE INJ 0.5% [Concomitant]
  5. CORLANOR TAB5MG [Concomitant]
  6. CORLANOR TAB 7.5MG [Concomitant]
  7. DIPHENHYDRAMINE HYDROCHLORIDE [Concomitant]
     Active Substance: DIPHENHYDRAMINE HYDROCHLORIDE
  8. DIPHENHYDRAMINE HYDROCHLO [Concomitant]
  9. ELIQUIS [Concomitant]
     Active Substance: APIXABAN
  10. EPINEPHRINE [Concomitant]
     Active Substance: EPINEPHRINE
  11. ESCITALOPRAM [Concomitant]
     Active Substance: ESCITALOPRAM OXALATE

REACTIONS (1)
  - Hospitalisation [None]
